FAERS Safety Report 22034750 (Version 2)
Quarter: 2023Q1

REPORT INFORMATION
  Report Type: Spontaneous
  Country: ES (occurrence: ES)
  Receive Date: 20230224
  Receipt Date: 20230228
  Transmission Date: 20230417
  Serious: Yes (Death)
  Sender: FDA-Public Use
  Company Number: ES-Accord-300694

PATIENT
  Age: 72 Year
  Sex: Female

DRUGS (4)
  1. GEMCITABINE HYDROCHLORIDE [Suspect]
     Active Substance: GEMCITABINE HYDROCHLORIDE
     Indication: Follicular lymphoma stage III
     Dosage: 1000 MG/M2, UNKNOWN
     Route: 065
  2. RITUXIMAB [Suspect]
     Active Substance: RITUXIMAB
     Indication: Follicular lymphoma stage III
     Dosage: 375 MG/M2, UNKNOWN
     Route: 065
  3. CISPLATIN [Suspect]
     Active Substance: CISPLATIN
     Indication: Follicular lymphoma stage III
     Dosage: 75 MG/M2, UNKNOWN
     Route: 065
  4. DEXAMETHASONE [Suspect]
     Active Substance: DEXAMETHASONE
     Indication: Follicular lymphoma stage III

REACTIONS (1)
  - Stress cardiomyopathy [Fatal]
